FAERS Safety Report 16688825 (Version 2)
Quarter: 2019Q4

REPORT INFORMATION
  Report Type: Report from Study
  Country: AR (occurrence: AR)
  Receive Date: 20190809
  Receipt Date: 20191129
  Transmission Date: 20200122
  Serious: Yes (Death)
  Sender: FDA-Public Use
  Company Number: AR-BEH-2019105602

PATIENT

DRUGS (1)
  1. HUMAN IMMUNOGLOBULIN (NON-COMPANY) [Suspect]
     Active Substance: HUMAN IMMUNOGLOBULIN G
     Indication: FOETAL CARDIAC DISORDER
     Route: 042

REACTIONS (3)
  - Maternal exposure timing unspecified [Fatal]
  - Drug ineffective for unapproved indication [Fatal]
  - Product use in unapproved indication [Fatal]
